FAERS Safety Report 25103495 (Version 1)
Quarter: 2025Q1

REPORT INFORMATION
  Report Type: Report from Study
  Country: US (occurrence: US)
  Receive Date: 20250321
  Receipt Date: 20250321
  Transmission Date: 20250409
  Serious: Yes (Hospitalization)
  Sender: JAZZ
  Company Number: US-JAZZ PHARMACEUTICALS-2025-US-007215

PATIENT
  Sex: Female

DRUGS (4)
  1. EPIDIOLEX [Suspect]
     Active Substance: CANNABIDIOL
     Indication: Idiopathic generalised epilepsy
     Dosage: 2.3 MILLILITER, BID FOR 7 DAYS
     Route: 048
     Dates: start: 202502
  2. EPIDIOLEX [Suspect]
     Active Substance: CANNABIDIOL
     Dosage: 4.6 MILLILITER, BID THEREAFTER
     Route: 048
     Dates: start: 202502
  3. EPIDIOLEX [Suspect]
     Active Substance: CANNABIDIOL
  4. EPIDIOLEX [Suspect]
     Active Substance: CANNABIDIOL

REACTIONS (2)
  - Psychotic disorder [Unknown]
  - Off label use [Unknown]
